FAERS Safety Report 22352813 (Version 1)
Quarter: 2023Q2

REPORT INFORMATION
  Report Type: Spontaneous
  Country: DE (occurrence: DE)
  Receive Date: 20230523
  Receipt Date: 20230523
  Transmission Date: 20230721
  Serious: Yes (Hospitalization, Congenital Anomaly, Other)
  Sender: FDA-Public Use
  Company Number: DE-EMBRYOTOX-202209565

PATIENT
  Sex: Male
  Weight: 2.56 kg

DRUGS (3)
  1. LEVETIRACETAM [Suspect]
     Active Substance: LEVETIRACETAM
     Indication: Foetal exposure during pregnancy
     Dosage: MATERNAL DOSE: 3000 MG/D / INITIAL 2X750MG DAILY, INCREASED TO 2X1500MG DAILY, STARTED 03 FEB 2022 A
     Route: 064
  2. AMOXICILLIN [Concomitant]
     Active Substance: AMOXICILLIN
     Indication: Foetal exposure during pregnancy
     Dosage: MATERNAL DOSE (1000 MG (0.5 DAY, 2000 [MG/D (2X1000)])
     Route: 064
  3. LEVOTHYROXINE SODIUM [Concomitant]
     Active Substance: LEVOTHYROXINE SODIUM
     Indication: Foetal exposure during pregnancy
     Dosage: MATERNAL DOSE: 50 UG QD, STARTED ON 03 FEB 2022 AND STOPPED ON 08 OCT 2022
     Route: 064

REACTIONS (6)
  - Urethral atresia [Not Recovered/Not Resolved]
  - Foetal megacystis [Recovered/Resolved]
  - Vesicoureteric reflux [Not Recovered/Not Resolved]
  - Cardiac hypertrophy [Unknown]
  - Pericardial effusion [Unknown]
  - Foetal exposure during pregnancy [Unknown]
